FAERS Safety Report 6113833-0 (Version None)
Quarter: 2009Q1

REPORT INFORMATION
  Report Type: 
  Country: None (occurrence: None)
  Receive Date: 20090312
  Receipt Date: 20090306
  Transmission Date: 20090719
  Serious: Yes (Hospitalization)
  Sender: FDA-Public Use
  Company Number: US-ABBOTT-08P-163-0477625-00

PATIENT
  Sex: Female
  Weight: 72.64 kg

DRUGS (12)
  1. HUMIRA [Suspect]
     Indication: CROHN'S DISEASE
     Route: 058
     Dates: start: 20060101, end: 20080101
  2. HUMIRA [Suspect]
     Dosage: PEN
     Route: 058
     Dates: start: 20080201
  3. HUMIRA [Suspect]
     Dosage: PEN
     Route: 058
     Dates: end: 20081204
  4. HUMIRA [Suspect]
     Dosage: PEN
     Route: 058
     Dates: start: 20090127
  5. IMURAN [Concomitant]
     Indication: CYSTITIS
     Route: 048
  6. DETRAL LA [Concomitant]
     Indication: CYSTITIS
     Route: 048
  7. FLONASE [Concomitant]
     Indication: SEASONAL ALLERGY
     Route: 048
  8. CLARITIN [Concomitant]
     Indication: SEASONAL ALLERGY
     Route: 048
  9. VITAMIN TAB [Concomitant]
     Indication: PREGNANCY
  10. BENADRYL [Concomitant]
     Indication: INSOMNIA
     Route: 048
  11. MELATONIN [Concomitant]
     Indication: INSOMNIA
     Route: 048
  12. SPRINTEC [Concomitant]
     Indication: CONTRACEPTION

REACTIONS (8)
  - COLONIC STENOSIS [None]
  - INFLUENZA [None]
  - INJECTION SITE IRRITATION [None]
  - INJECTION SITE PAIN [None]
  - LARGE INTESTINE ANASTOMOSIS [None]
  - NASOPHARYNGITIS [None]
  - PAIN [None]
  - PERINEAL LACERATION [None]
